FAERS Safety Report 16237111 (Version 1)
Quarter: 2019Q2

REPORT INFORMATION
  Report Type: Spontaneous
  Country: US (occurrence: US)
  Receive Date: 20190320
  Receipt Date: 20190320
  Transmission Date: 20190711
  Serious: Yes (Hospitalization, Disabling, Other)
  Sender: FDA-Public Use
  Company Number: None

PATIENT
  Age: 39 Year
  Sex: Female
  Weight: 83.91 kg

DRUGS (5)
  1. STRATTERA [Suspect]
     Active Substance: ATOMOXETINE HYDROCHLORIDE
     Dates: start: 1997, end: 20190313
  2. METFORMIN [Concomitant]
     Active Substance: METFORMIN HYDROCHLORIDE
  3. ABILIFY [Suspect]
     Active Substance: ARIPIPRAZOLE
     Indication: SCHIZOAFFECTIVE DISORDER
     Dates: start: 1997, end: 20190313
  4. MELOXICAM. [Concomitant]
     Active Substance: MELOXICAM
  5. DRAMAMINE [Concomitant]
     Active Substance: DIMENHYDRINATE

REACTIONS (4)
  - Fatigue [None]
  - Hypersomnia [None]
  - Somnambulism [None]
  - Lipids increased [None]

NARRATIVE: CASE EVENT DATE: 20190313
